FAERS Safety Report 9585559 (Version 6)
Quarter: 2014Q2

REPORT INFORMATION
  Report Type: Report from Study
  Country: US (occurrence: US)
  Receive Date: 20131003
  Receipt Date: 20140516
  Transmission Date: 20141212
  Serious: Yes (Hospitalization)
  Sender: FDA-Public Use
  Company Number: US-BIOGENIDEC-2013BI094376

PATIENT
  Age: 44 Year
  Sex: Female

DRUGS (2)
  1. TECFIDERA [Suspect]
     Indication: RELAPSING-REMITTING MULTIPLE SCLEROSIS
     Route: 048
     Dates: start: 20130705, end: 20130713
  2. CARIMUNE NF [Concomitant]
     Indication: MULTIPLE SCLEROSIS
     Dates: start: 20130626, end: 20130626

REACTIONS (10)
  - Stress cardiomyopathy [Recovered/Resolved]
  - Aspiration [Recovered/Resolved]
  - Cardiac arrest [Recovered/Resolved]
  - Chest pain [Recovered/Resolved]
  - Palpitations [Recovered/Resolved]
  - Presyncope [Recovered/Resolved]
  - Nausea [Recovered/Resolved]
  - Vomiting [Recovered/Resolved]
  - Dehydration [Recovered/Resolved]
  - Dyspnoea [Unknown]
